FAERS Safety Report 5825290-X (Version None)
Quarter: 2008Q3

REPORT INFORMATION
  Report Type: 
  Country: None (occurrence: None)
  Receive Date: 20080722
  Receipt Date: 20080708
  Transmission Date: 20090109
  Serious: Yes (Death)
  Sender: FDA-Public Use
  Company Number: 2008VX001438

PATIENT
  Age: 7 Day

DRUGS (1)
  1. CAPITAL AND CODEINE ORAL SUSPENSION [Suspect]
     Indication: EPISIOTOMY
     Dosage: 120 MG;QD;60MG;QD

REACTIONS (6)
  - CYANOSIS NEONATAL [None]
  - DRUG EXPOSURE VIA BREAST MILK [None]
  - DRUG LEVEL INCREASED [None]
  - FEEDING DISORDER NEONATAL [None]
  - LETHARGY [None]
  - NEONATAL DISORDER [None]
